FAERS Safety Report 22246184 (Version 4)
Quarter: 2023Q2

REPORT INFORMATION
  Report Type: Report from Study
  Country: US (occurrence: US)
  Receive Date: 20230424
  Receipt Date: 20230609
  Transmission Date: 20230722
  Serious: Yes (Hospitalization, Other)
  Sender: FDA-Public Use
  Company Number: US-UCBSA-2023021056

PATIENT
  Age: 11 Year
  Sex: Female
  Weight: 99.3 kg

DRUGS (4)
  1. FINTEPLA [Suspect]
     Active Substance: FENFLURAMINE
     Indication: Lennox-Gastaut syndrome
     Dosage: 6 MILLILITER, 2X/DAY (BID)
     Dates: start: 202003, end: 20230323
  2. FINTEPLA [Suspect]
     Active Substance: FENFLURAMINE
     Indication: Status epilepticus
  3. DEPAKOTE [Concomitant]
     Active Substance: DIVALPROEX SODIUM
     Indication: Seizure
     Dosage: 375 GRAM, 3X/DAY (TID)
     Route: 048
  4. BANZEL [Concomitant]
     Active Substance: RUFINAMIDE
     Indication: Seizure
     Dosage: 900 GRAM, 2X/DAY (BID)
     Route: 048

REACTIONS (5)
  - Dyspnoea [Recovered/Resolved]
  - Diarrhoea [Recovered/Resolved]
  - Somnolence [Recovered/Resolved]
  - Fatigue [Recovered/Resolved]
  - Decreased appetite [Recovered/Resolved]

NARRATIVE: CASE EVENT DATE: 20230315
